FAERS Safety Report 5527610-2 (Version None)
Quarter: 2007Q4

REPORT INFORMATION
  Report Type: 
  Country: None (occurrence: None)
  Receive Date: 20071121
  Receipt Date: 20071108
  Transmission Date: 20080405
  Serious: Yes (Hospitalization)
  Sender: FDA-Public Use
  Company Number: MEDI-0006166

PATIENT
  Age: 81 Year
  Sex: Male
  Weight: 84.8226 kg

DRUGS (5)
  1. ETHYOL [Suspect]
     Indication: LUNG NEOPLASM MALIGNANT
     Dosage: 500 MG, 1 IN 1 D,  SUBCUTANEOUS
     Route: 058
     Dates: start: 20070828, end: 20070905
  2. ETHYOL [Suspect]
     Indication: RADIOTHERAPY
     Dosage: 500 MG, 1 IN 1 D,  SUBCUTANEOUS
     Route: 058
     Dates: start: 20070828, end: 20070905
  3. ETHYOL [Suspect]
     Indication: LUNG NEOPLASM MALIGNANT
     Dosage: 500 MG, 1 IN 1 D,  SUBCUTANEOUS
     Route: 058
     Dates: start: 20070906, end: 20070927
  4. ETHYOL [Suspect]
     Indication: RADIOTHERAPY
     Dosage: 500 MG, 1 IN 1 D,  SUBCUTANEOUS
     Route: 058
     Dates: start: 20070906, end: 20070927
  5. RADIATION THERAPY [Suspect]

REACTIONS (5)
  - ERYTHEMA [None]
  - PRURITUS [None]
  - PYREXIA [None]
  - RADIATION INJURY [None]
  - RASH [None]
